FAERS Safety Report 7648397-3 (Version None)
Quarter: 2011Q3

REPORT INFORMATION
  Report Type: 
  Country: None (occurrence: None)
  Receive Date: 20110801
  Receipt Date: 20110721
  Transmission Date: 20111222
  Serious: Yes (Hospitalization)
  Sender: FDA-Public Use
  Company Number: IT-PFIZER INC-2011148875

PATIENT
  Age: 80 Year
  Sex: Female

DRUGS (3)
  1. NEBIVOLOL HCL [Concomitant]
     Dosage: 5 MG, UNK
     Route: 048
     Dates: end: 20110615
  2. IRBESARTAN [Concomitant]
     Dosage: 75 MG, UNK
     Route: 048
  3. CELEBREX [Suspect]
     Indication: PAIN IN EXTREMITY
     Dosage: 200 MG, 1X/DAY
     Route: 048
     Dates: start: 20110611, end: 20110618

REACTIONS (1)
  - PURPURA [None]
